FAERS Safety Report 9420179 (Version 1)
Quarter: 2013Q3

REPORT INFORMATION
  Report Type: Spontaneous
  Country: GB (occurrence: GB)
  Receive Date: 20130725
  Receipt Date: 20130725
  Transmission Date: 20140515
  Serious: Yes (Other)
  Sender: FDA-Public Use
  Company Number: GB-SANOFI-AVENTIS-2013SA070827

PATIENT
  Age: 62 Year
  Sex: Female

DRUGS (5)
  1. METFORMIN [Suspect]
     Indication: TYPE 2 DIABETES MELLITUS
     Route: 065
  2. CLOPIDOGREL BISULFATE [Suspect]
     Indication: PERIPHERAL VASCULAR DISORDER
     Route: 065
  3. INSULIN [Concomitant]
     Indication: TYPE 2 DIABETES MELLITUS
  4. RAMIPRIL [Concomitant]
     Indication: HYPERTENSION
  5. SIMVASTATIN [Concomitant]

REACTIONS (2)
  - Sweat gland tumour [Unknown]
  - Haemorrhage [Unknown]
